FAERS Safety Report 6764921-7 (Version None)
Quarter: 2010Q2

REPORT INFORMATION
  Report Type: 
  Country: None (occurrence: None)
  Receive Date: 20100610
  Receipt Date: 20100601
  Transmission Date: 20101027
  Serious: Yes (Hospitalization)
  Sender: FDA-Public Use
  Company Number: DE-AMGEN-QUU411616

PATIENT
  Sex: Male
  Weight: 98 kg

DRUGS (3)
  1. ENBREL [Suspect]
     Indication: SPONDYLITIS
     Route: 058
     Dates: start: 20040201
  2. METOPROLOL TARTRATE [Concomitant]
  3. DILTIAZEM [Concomitant]
     Dates: end: 20100201

REACTIONS (3)
  - ATRIAL FIBRILLATION [None]
  - HYPERTRIGLYCERIDAEMIA [None]
  - LEFT VENTRICULAR DYSFUNCTION [None]
